FAERS Safety Report 5087670-2 (Version None)
Quarter: 2006Q3

REPORT INFORMATION
  Report Type: 
  Country: None (occurrence: None)
  Receive Date: 20060727
  Receipt Date: 20060403
  Transmission Date: 20061208
  Serious: Yes (Other)
  Sender: FDA-Public Use
  Company Number: 2006047395

PATIENT
  Age: 69 Year
  Sex: Female
  Weight: 72.5755 kg

DRUGS (9)
  1. LYRICA [Suspect]
     Indication: NEURALGIA
     Dosage: (100 MG, PRN), ORAL
     Route: 048
     Dates: start: 20060306
  2. HYDROCODONE (HYDROCODONE) [Concomitant]
  3. MELATONIN (MELATONIN) [Concomitant]
  4. ULTRAM [Concomitant]
  5. ADVAIR DISKUS 100/50 [Concomitant]
  6. ALBUTEROL [Concomitant]
  7. GLUTAMINE (LEVOGLUTAMIDE) [Concomitant]
  8. HYDROCHLOROTHIAZIDE [Concomitant]
  9. LEVOTHYROXINE SODIUM [Concomitant]

REACTIONS (2)
  - RASH PRURITIC [None]
  - SKIN IRRITATION [None]
